FAERS Safety Report 4526790-5 (Version None)
Quarter: 2004Q4

REPORT INFORMATION
  Report Type: 
  Country: None (occurrence: None)
  Receive Date: 20041213
  Receipt Date: 20041129
  Transmission Date: 20050328
  Serious: Yes (Disabling)
  Sender: FDA-Public Use
  Company Number: 2002UW16050

PATIENT
  Age: 50 Year
  Sex: Male
  Weight: 86.1834 kg

DRUGS (3)
  1. SEROQUEL [Suspect]
     Indication: BIPOLAR DISORDER
     Dosage: 200 TO 400 MG
     Dates: start: 20000101
  2. SEROQUEL [Suspect]
     Indication: MENTAL DISORDER
     Dosage: 200 TO 400 MG
     Dates: start: 20000101
  3. LITHIUM [Concomitant]

REACTIONS (5)
  - CIRCADIAN RHYTHM SLEEP DISORDER [None]
  - DEPENDENCE [None]
  - FAECES DISCOLOURED [None]
  - HEPATIC FIBROSIS [None]
  - INSOMNIA [None]
